FAERS Safety Report 24051945 (Version 2)
Quarter: 2024Q3

REPORT INFORMATION
  Report Type: Report from Study
  Country: US (occurrence: US)
  Receive Date: 20240704
  Receipt Date: 20240709
  Transmission Date: 20241017
  Serious: Yes (Hospitalization, Other)
  Sender: ABBVIE
  Company Number: US-ABBVIE-5824204

PATIENT
  Sex: Female
  Weight: 54 kg

DRUGS (17)
  1. HUMIRA [Suspect]
     Active Substance: ADALIMUMAB
     Indication: Psoriasis
     Dosage: FORM STRENGTH: 40 MG
     Route: 058
     Dates: start: 20140101, end: 20240621
  2. KLONOPIN [Concomitant]
     Active Substance: CLONAZEPAM
     Indication: Anxiety
  3. PEPCID [Concomitant]
     Active Substance: FAMOTIDINE
     Indication: Oesophageal stenosis
  4. VITAMIN B12 [Concomitant]
     Active Substance: CYANOCOBALAMIN
     Indication: Vitamin supplementation
  5. PATADAY [Concomitant]
     Active Substance: OLOPATADINE HYDROCHLORIDE
     Indication: Dry eye
     Dosage: TIME INTERVAL: AS NECESSARY: FREQUENCY TEXT: AS NEEDED
     Route: 047
  6. NEXIUM [Concomitant]
     Active Substance: ESOMEPRAZOLE MAGNESIUM
     Indication: Oesophageal stenosis
  7. VITAMIN E [Concomitant]
     Active Substance: .ALPHA.-TOCOPHEROL
     Indication: Vitamin supplementation
  8. CARAFATE [Concomitant]
     Active Substance: SUCRALFATE
     Indication: Ulcer
  9. MINOXIDIL [Concomitant]
     Active Substance: MINOXIDIL
     Indication: Alopecia
  10. TETRAHYDROZOLINE HYDROCHLORIDE [Concomitant]
     Active Substance: TETRAHYDROZOLINE HYDROCHLORIDE
     Indication: Dry eye
     Dosage: TIME INTERVAL: AS NECESSARY: FREQUENCY TEXT: AS NEEDED
  11. PROBIOTICS NOS [Concomitant]
     Active Substance: PROBIOTICS NOS
     Indication: Probiotic therapy
  12. TIZANIDINE [Concomitant]
     Active Substance: TIZANIDINE
     Indication: Muscle spasms
  13. ALLEGRA [Concomitant]
     Active Substance: FEXOFENADINE HYDROCHLORIDE
     Indication: Alopecia
  14. VITAMIN C [Concomitant]
     Active Substance: ASCORBIC ACID
     Indication: Vitamin supplementation
  15. BENADRYL [Concomitant]
     Active Substance: DIPHENHYDRAMINE HYDROCHLORIDE
     Indication: Sleep disorder
     Dosage: TIME INTERVAL: AS NECESSARY: FREQUENCY TEXT: AS NEEDED
  16. PHENERGAN [Concomitant]
     Active Substance: PROMETHAZINE HYDROCHLORIDE
     Indication: Nausea
     Dosage: TIME INTERVAL: AS NECESSARY: FREQUENCY TEXT: AS NEEDED
  17. Covid-19 vaccine [Concomitant]
     Indication: COVID-19 immunisation
     Route: 030

REACTIONS (25)
  - Pharyngeal inflammation [Not Recovered/Not Resolved]
  - Pain [Not Recovered/Not Resolved]
  - Psoriasis [Not Recovered/Not Resolved]
  - Post procedural sepsis [Recovered/Resolved]
  - Pathological fracture [Not Recovered/Not Resolved]
  - Alopecia [Unknown]
  - Osteoporosis [Unknown]
  - Dysphagia [Not Recovered/Not Resolved]
  - Plasma cell myeloma [Unknown]
  - Abdominal hernia [Recovering/Resolving]
  - Umbilical hernia [Recovering/Resolving]
  - Therapeutic product effect decreased [Unknown]
  - Post procedural fever [Recovered/Resolved]
  - Muscle spasms [Unknown]
  - Hip surgery [Unknown]
  - Hip surgery [Unknown]
  - Pelvic pain [Not Recovered/Not Resolved]
  - Back pain [Not Recovered/Not Resolved]
  - Knee arthroplasty [Unknown]
  - Procedural pain [Not Recovered/Not Resolved]
  - Knee arthroplasty [Unknown]
  - Petechiae [Unknown]
  - Hip surgery [Unknown]
  - Procedural pain [Unknown]
  - Arthralgia [Not Recovered/Not Resolved]

NARRATIVE: CASE EVENT DATE: 20170101
